FAERS Safety Report 8758967 (Version 3)
Quarter: 2012Q4

REPORT INFORMATION
  Report Type: 
  Country: PH (occurrence: US)
  Receive Date: 20120829
  Receipt Date: 20121220
  Transmission Date: 20130627
  Serious: Yes (Other)
  Sender: FDA-Public Use
  Company Number: PH-009507513-1208USA009364

PATIENT
  Age: 75 Year
  Sex: Female

DRUGS (1)
  1. FOSAMAX [Suspect]
     Dosage: UNK
     Route: 048
     Dates: end: 201008

REACTIONS (3)
  - Femur fracture [Unknown]
  - Osteoporosis [Unknown]
  - Accident [Unknown]
